FAERS Safety Report 16366169 (Version 1)
Quarter: 2019Q3

REPORT INFORMATION
  Report Type: Spontaneous
  Country: US (occurrence: US)
  Receive Date: 20190528
  Receipt Date: 20190528
  Transmission Date: 20191004
  Serious: No
  Sender: FDA-Public Use
  Company Number: None

PATIENT
  Age: 44 Year
  Sex: Female
  Weight: 59.4 kg

DRUGS (4)
  1. ZOLOFT 75 MG [Concomitant]
  2. DEPO-MEDROL [Suspect]
     Active Substance: METHYLPREDNISOLONE ACETATE
     Indication: SEASONAL ALLERGY
     Dates: start: 20190313
  3. ZYRTEC [Concomitant]
     Active Substance: CETIRIZINE HYDROCHLORIDE
  4. ATIVAN .5 AS NEEDED [Concomitant]

REACTIONS (6)
  - Inflammation [None]
  - Weight decreased [None]
  - Psychotic disorder [None]
  - Gastrointestinal disorder [None]
  - Anxiety [None]
  - Hormone level abnormal [None]

NARRATIVE: CASE EVENT DATE: 20190313
